FAERS Safety Report 4387760-3 (Version None)
Quarter: 2004Q2

REPORT INFORMATION
  Report Type: 
  Country: None (occurrence: None)
  Receive Date: 20040625
  Receipt Date: 20040610
  Transmission Date: 20050107
  Serious: Yes (Death)
  Sender: FDA-Public Use
  Company Number: 2004AP03066

PATIENT
  Age: 37 Year
  Sex: Male

DRUGS (1)
  1. DIPRIVAN [Suspect]
     Indication: GENERAL ANAESTHESIA
     Dosage: 1 % IV
     Route: 042

REACTIONS (7)
  - DIARRHOEA [None]
  - GASTROINTESTINAL INFECTION [None]
  - HAEMODIALYSIS [None]
  - OPERATIVE HAEMORRHAGE [None]
  - RENAL FAILURE ACUTE [None]
  - RESPIRATORY ARREST [None]
  - RHABDOMYOLYSIS [None]
